FAERS Safety Report 4457093-5 (Version None)
Quarter: 2004Q3

REPORT INFORMATION
  Report Type: 
  Country: None (occurrence: None)
  Receive Date: 20040921
  Receipt Date: 20040907
  Transmission Date: 20050211
  Serious: Yes (Hospitalization)
  Sender: FDA-Public Use
  Company Number: 04P-163-0273427-00

PATIENT
  Sex: Female

DRUGS (1)
  1. DEPAKOTE [Suspect]
     Dosage: PER ORAL
     Route: 048
     Dates: end: 20040701

REACTIONS (3)
  - HYPERCALCAEMIA [None]
  - HYPONATRAEMIA [None]
  - MENTAL DISORDER [None]
